FAERS Safety Report 7998762-X (Version None)
Quarter: 2011Q4

REPORT INFORMATION
  Report Type: 
  Country: None (occurrence: None)
  Receive Date: 20111221
  Receipt Date: 20111206
  Transmission Date: 20120403
  Serious: Yes (Other)
  Sender: FDA-Public Use
  Company Number: KR-WATSON-2011-21516

PATIENT
  Age: 23 Year
  Sex: Female

DRUGS (1)
  1. FLUOXETINE HCL [Suspect]
     Indication: BULIMIA NERVOSA
     Dosage: 20MG/D EVERY MORNING, AFTER 7 DAYS INCREASED TO 40MG/D EVERY MORNING
     Route: 065

REACTIONS (3)
  - ARTHRALGIA [None]
  - SEDATION [None]
  - YAWNING [None]
